FAERS Safety Report 17231587 (Version 6)
Quarter: 2020Q1

REPORT INFORMATION
  Report Type: Spontaneous
  Country: US (occurrence: US)
  Receive Date: 20200103
  Receipt Date: 20200309
  Transmission Date: 20200409
  Serious: No
  Sender: FDA-Public Use
  Company Number: US-PFIZER INC-2019563080

PATIENT
  Age: 82 Year
  Sex: Female
  Weight: 98 kg

DRUGS (3)
  1. XELJANZ XR [Suspect]
     Active Substance: TOFACITINIB CITRATE
     Indication: RHEUMATOID ARTHRITIS
     Dosage: 11 MG, UNK
     Route: 048
  2. XELJANZ XR [Suspect]
     Active Substance: TOFACITINIB CITRATE
     Dosage: 5.5 MG, DAILY [TAKE 1/2 TABLET A DAY]
     Route: 048
  3. XELJANZ XR [Suspect]
     Active Substance: TOFACITINIB CITRATE
     Dosage: 5 MG, AS NEEDED(CUT TABLET IN HALF TO TAKE 5 MG ONCE DAILY AS NEEDED TAKE HALF TABLET TWICE PER DAY)
     Route: 048

REACTIONS (9)
  - Off label use [Unknown]
  - Anaemia [Unknown]
  - Weight fluctuation [Unknown]
  - Infection [Unknown]
  - Product use issue [Unknown]
  - Drug hypersensitivity [Unknown]
  - Haemoglobin decreased [Unknown]
  - Product prescribing error [Unknown]
  - Visual impairment [Unknown]
